FAERS Safety Report 4494879-5 (Version None)
Quarter: 2004Q4

REPORT INFORMATION
  Report Type: 
  Country: None (occurrence: None)
  Receive Date: 20041103
  Receipt Date: 20041021
  Transmission Date: 20050328
  Serious: Yes (Other)
  Sender: FDA-Public Use
  Company Number: HQWYE995722OCT04

PATIENT

DRUGS (1)
  1. RAPAMUNE [Suspect]
     Dates: end: 20041004

REACTIONS (7)
  - DRUG TOXICITY [None]
  - GLUCOSE TOLERANCE IMPAIRED [None]
  - HAEMOPTYSIS [None]
  - JAUNDICE [None]
  - PNEUMONITIS [None]
  - RENAL FAILURE ACUTE [None]
  - THROMBOCYTOPENIA [None]
